FAERS Safety Report 20700272 (Version 2)
Quarter: 2023Q1

REPORT INFORMATION
  Report Type: Spontaneous
  Country: IN (occurrence: IN)
  Receive Date: 20220412
  Receipt Date: 20230317
  Transmission Date: 20230418
  Serious: Yes (Hospitalization, Other)
  Sender: FDA-Public Use
  Company Number: IN-PFIZER INC-202200380044

PATIENT
  Age: 49 Year
  Sex: Male

DRUGS (1)
  1. SUTENT [Suspect]
     Active Substance: SUNITINIB MALATE
     Dosage: 37.5 MG
     Dates: start: 20211223

REACTIONS (3)
  - Internal haemorrhage [Recovered/Resolved]
  - Abdominal neoplasm [Unknown]
  - Product dispensing error [Unknown]
